FAERS Safety Report 13734596 (Version 1)
Quarter: 2017Q3

REPORT INFORMATION
  Report Type: Spontaneous
  Country: US (occurrence: US)
  Receive Date: 20170709
  Receipt Date: 20170709
  Transmission Date: 20171127
  Serious: No
  Sender: FDA-Public Use
  Company Number: US-BIOGEN-2012BI019690

PATIENT
  Sex: Female

DRUGS (1)
  1. AVONEX [Suspect]
     Active Substance: INTERFERON BETA-1A
     Indication: MULTIPLE SCLEROSIS
     Route: 030
     Dates: start: 20050610, end: 20060705

REACTIONS (3)
  - Injury associated with device [Unknown]
  - Influenza like illness [Recovered/Resolved]
  - Weight decreased [Recovered/Resolved]

NARRATIVE: CASE EVENT DATE: 2005
